FAERS Safety Report 24133041 (Version 2)
Quarter: 2024Q3

REPORT INFORMATION
  Report Type: Spontaneous
  Country: US (occurrence: US)
  Receive Date: 20240724
  Receipt Date: 20240729
  Transmission Date: 20241016
  Serious: Yes (Other)
  Sender: NOVARTIS
  Company Number: US-002147023-NVSC2024US147937

PATIENT
  Sex: Female

DRUGS (2)
  1. COSENTYX [Suspect]
     Active Substance: SECUKINUMAB
     Indication: Psoriatic arthropathy
     Dosage: 150 MG
     Route: 065
  2. COSENTYX [Suspect]
     Active Substance: SECUKINUMAB
     Dosage: 300 MG
     Route: 065

REACTIONS (12)
  - Psoriatic arthropathy [Unknown]
  - Rash [Unknown]
  - Arthropathy [Unknown]
  - Joint swelling [Unknown]
  - Enthesopathy [Unknown]
  - Arthralgia [Unknown]
  - Pain in extremity [Unknown]
  - Skin discolouration [Unknown]
  - Pain [Unknown]
  - COVID-19 [Unknown]
  - Feeling abnormal [Unknown]
  - Drug ineffective [Unknown]
